FAERS Safety Report 22040960 (Version 2)
Quarter: 2023Q1

REPORT INFORMATION
  Report Type: Spontaneous
  Country: DE (occurrence: DE)
  Receive Date: 20230227
  Receipt Date: 20230331
  Transmission Date: 20230418
  Serious: Yes (Hospitalization)
  Sender: FDA-Public Use
  Company Number: DE-AMGEN-DEUSP2023016562

PATIENT
  Sex: Male

DRUGS (1)
  1. ARANESP [Suspect]
     Active Substance: DARBEPOETIN ALFA
     Indication: Renal failure
     Dosage: 40 MICROGRAM
     Route: 065

REACTIONS (3)
  - Unevaluable event [Unknown]
  - Urinary tract infection [Unknown]
  - Hypernatraemia [Unknown]
